FAERS Safety Report 4489962-4 (Version None)
Quarter: 2004Q4

REPORT INFORMATION
  Report Type: 
  Country: None (occurrence: None)
  Receive Date: 20041101
  Receipt Date: 20040927
  Transmission Date: 20050328
  Serious: Yes (Other)
  Sender: FDA-Public Use
  Company Number: JP-GLAXOSMITHKLINE-B0347120A

PATIENT
  Age: 24 Year
  Sex: Female

DRUGS (1)
  1. PAROXETINE HCL [Suspect]
     Indication: PANIC DISORDER
     Dosage: 10MG UNKNOWN
     Route: 048
     Dates: start: 20030501, end: 20040916

REACTIONS (1)
  - ABORTION SPONTANEOUS [None]
